FAERS Safety Report 24199564 (Version 3)
Quarter: 2024Q4

REPORT INFORMATION
  Report Type: Spontaneous
  Country: US (occurrence: US)
  Receive Date: 20240812
  Receipt Date: 20241118
  Transmission Date: 20250114
  Serious: Yes (Other)
  Sender: PFIZER
  Company Number: US-PFIZER INC-202400232328

PATIENT
  Age: 81 Year
  Sex: Female
  Weight: 57.143 kg

DRUGS (2)
  1. NIVESTYM [Suspect]
     Active Substance: FILGRASTIM-AAFI
     Indication: White blood cell count decreased
     Dosage: THREE OF THEM
  2. NIVESTYM [Suspect]
     Active Substance: FILGRASTIM-AAFI
     Dosage: 3 DF, 1X/DAY
     Route: 030
     Dates: start: 20240725, end: 20240729

REACTIONS (8)
  - Paralysis [Unknown]
  - Weight decreased [Unknown]
  - Movement disorder [Unknown]
  - Dyspnoea [Unknown]
  - Illness [Recovered/Resolved]
  - Asthenia [Unknown]
  - Fear of falling [Recovered/Resolved]
  - Off label use [Unknown]

NARRATIVE: CASE EVENT DATE: 20240722
